FAERS Safety Report 12498954 (Version 1)
Quarter: 2016Q2

REPORT INFORMATION
  Report Type: Spontaneous
  Country: US (occurrence: US)
  Receive Date: 20160627
  Receipt Date: 20160627
  Transmission Date: 20160815
  Serious: No
  Sender: FDA-Public Use
  Company Number: US-TEVA-653995USA

PATIENT
  Sex: Female
  Weight: 58.11 kg

DRUGS (1)
  1. LETROZOLE. [Suspect]
     Active Substance: LETROZOLE
     Indication: BREAST CANCER
     Dates: start: 201506

REACTIONS (4)
  - Influenza like illness [Unknown]
  - Malaise [Unknown]
  - Asthenia [Unknown]
  - Pyrexia [Unknown]
